FAERS Safety Report 24789594 (Version 1)
Quarter: 2024Q4

REPORT INFORMATION
  Report Type: Spontaneous
  Country: US (occurrence: US)
  Receive Date: 20241230
  Receipt Date: 20241230
  Transmission Date: 20250115
  Serious: Yes (Other)
  Sender: ELI LILLY AND COMPANY
  Company Number: US-ELI_LILLY_AND_COMPANY-US202412017215

PATIENT
  Age: 68 Year
  Sex: Male

DRUGS (5)
  1. HUMULIN N [Suspect]
     Active Substance: INSULIN HUMAN
     Indication: Type 2 diabetes mellitus
     Dosage: 120 U, BID
     Route: 065
     Dates: start: 1994
  2. HUMULIN N [Suspect]
     Active Substance: INSULIN HUMAN
     Dosage: 120 U, BID
     Route: 065
  3. HUMALOG [Suspect]
     Active Substance: INSULIN LISPRO
     Indication: Type 2 diabetes mellitus
     Dosage: 200 U, PRN
     Route: 065
  4. METFORMIN [Suspect]
     Active Substance: METFORMIN HYDROCHLORIDE
     Indication: Product used for unknown indication
     Dosage: UNK UNK, UNKNOWN
     Route: 065
     Dates: end: 202412
  5. GLIPIZIDE [Concomitant]
     Active Substance: GLIPIZIDE
     Indication: Type 2 diabetes mellitus
     Dosage: UNK UNK, UNKNOWN

REACTIONS (9)
  - Cerebrovascular accident [Recovered/Resolved]
  - Chronic obstructive pulmonary disease [Recovering/Resolving]
  - Diarrhoea [Recovered/Resolved]
  - Insulin resistance [Not Recovered/Not Resolved]
  - Haemorrhoids [Not Recovered/Not Resolved]
  - Anal fissure [Recovering/Resolving]
  - Drug dependence [Recovered/Resolved]
  - Cough [Recovered/Resolved]
  - Weight increased [Not Recovered/Not Resolved]

NARRATIVE: CASE EVENT DATE: 19970101
